FAERS Safety Report 18762637 (Version 1)
Quarter: 2021Q1

REPORT INFORMATION
  Report Type: Spontaneous
  Country: FR (occurrence: FR)
  Receive Date: 20210120
  Receipt Date: 20210120
  Transmission Date: 20210419
  Serious: Yes (Hospitalization)
  Sender: FDA-Public Use
  Company Number: FR-PFIZER INC-2021026937

PATIENT
  Age: 49 Year
  Sex: Male
  Weight: 86 kg

DRUGS (3)
  1. MEROPENEM. [Suspect]
     Active Substance: MEROPENEM
     Indication: INFECTION
     Dosage: 6 G
     Dates: start: 20201221, end: 20201223
  2. VANCOMYCIN [Suspect]
     Active Substance: VANCOMYCIN
     Indication: INFECTION
     Dosage: 1500 MG ON 2 HOURS
     Route: 042
     Dates: start: 20201221
  3. AMOXICILLINE [AMOXICILLIN SODIUM] [Suspect]
     Active Substance: AMOXICILLIN SODIUM
     Indication: INFECTION
     Dosage: 9 G
     Route: 042
     Dates: start: 20201223, end: 20201224

REACTIONS (2)
  - Neutropenia [Recovered/Resolved]
  - Thrombocytopenia [Recovered/Resolved]

NARRATIVE: CASE EVENT DATE: 20201224
